FAERS Safety Report 25513141 (Version 1)
Quarter: 2025Q3

REPORT INFORMATION
  Report Type: Spontaneous
  Country: US (occurrence: US)
  Receive Date: 20250703
  Receipt Date: 20250703
  Transmission Date: 20251020
  Serious: No
  Sender: RADIUS PHARM
  Company Number: US-RADIUS HEALTH INC.-2024US005371

PATIENT
  Age: 85 Year
  Sex: Female

DRUGS (3)
  1. TYMLOS [Suspect]
     Active Substance: ABALOPARATIDE
     Indication: Osteoporosis
     Route: 058
     Dates: start: 20240627
  2. TYMLOS [Suspect]
     Active Substance: ABALOPARATIDE
     Dates: start: 202407
  3. TYMLOS [Suspect]
     Active Substance: ABALOPARATIDE
     Dates: start: 202407

REACTIONS (2)
  - Chills [Not Recovered/Not Resolved]
  - Intentional product misuse [Unknown]

NARRATIVE: CASE EVENT DATE: 20240627
